FAERS Safety Report 7462644-2 (Version None)
Quarter: 2011Q2

REPORT INFORMATION
  Report Type: 
  Country: None (occurrence: None)
  Receive Date: 20110506
  Receipt Date: 20110502
  Transmission Date: 20111010
  Serious: Yes (Other)
  Sender: FDA-Public Use
  Company Number: PHEH2004US10935

PATIENT
  Sex: Female

DRUGS (4)
  1. ZOMETA [Suspect]
     Indication: BREAST CANCER METASTATIC
     Dosage: UNK/UNK
  2. ANTIBIOTICS [Concomitant]
     Dosage: UNK
     Dates: start: 20041001, end: 20050201
  3. PERIDEX [Concomitant]
     Dosage: UNK
     Dates: start: 20041001, end: 20050201
  4. KEFLEX [Concomitant]
     Indication: INFECTION
     Dosage: 500 MG/H, QID
     Route: 048
     Dates: start: 20050218

REACTIONS (6)
  - ABSCESS JAW [None]
  - HYPOAESTHESIA ORAL [None]
  - ORAL MUCOSAL EXFOLIATION [None]
  - OSTEONECROSIS [None]
  - HYPERBARIC OXYGEN THERAPY [None]
  - BONE DISORDER [None]
